FAERS Safety Report 7092394-6 (Version None)
Quarter: 2010Q4

REPORT INFORMATION
  Report Type: 
  Country: None (occurrence: None)
  Receive Date: 20101110
  Receipt Date: 20101102
  Transmission Date: 20110411
  Serious: Yes (Hospitalization)
  Sender: FDA-Public Use
  Company Number: US-BIOGENIDEC-2010BI038136

PATIENT
  Age: 50 Year
  Sex: Female
  Weight: 106 kg

DRUGS (7)
  1. AVONEX [Suspect]
     Indication: MULTIPLE SCLEROSIS
     Route: 030
     Dates: start: 20090927
  2. ENALAPRIL [Concomitant]
     Indication: HYPERTENSION
  3. ATENOLOL [Concomitant]
     Indication: HYPERTENSION
  4. GLIPIZIDE [Concomitant]
     Indication: DIABETES MELLITUS
  5. RANITIDINE [Concomitant]
     Indication: GASTROOESOPHAGEAL REFLUX DISEASE
  6. LORATADINE [Concomitant]
     Indication: SEASONAL ALLERGY
  7. TRAMADOL HCL [Concomitant]

REACTIONS (1)
  - OPTIC NEURITIS [None]
